FAERS Safety Report 9895106 (Version 1)
Quarter: 2014Q1

REPORT INFORMATION
  Report Type: Spontaneous
  Country: US (occurrence: US)
  Receive Date: 20140213
  Receipt Date: 20140213
  Transmission Date: 20141002
  Serious: Yes (Other)
  Sender: FDA-Public Use
  Company Number: US-BRISTOL-MYERS SQUIBB COMPANY-18700526

PATIENT
  Age: 63 Year
  Sex: Female

DRUGS (15)
  1. ORENCIA [Suspect]
     Indication: RHEUMATOID ARTHRITIS
     Dosage: ORENCIA INFUSION
  2. MOBIC [Concomitant]
  3. PLAQUENIL [Concomitant]
  4. ESTRADIOL [Concomitant]
  5. LANSOPRAZOLE [Concomitant]
  6. VESICARE [Concomitant]
  7. FOLIC ACID [Concomitant]
  8. PRAMIPEXOLE HCL [Concomitant]
  9. ATORVASTATIN [Concomitant]
  10. CYMBALTA [Concomitant]
  11. KEFLEX [Concomitant]
  12. CLARITIN [Concomitant]
  13. CALCIUM [Concomitant]
  14. VITAMIN D [Concomitant]
  15. MULTIVITAMIN [Concomitant]

REACTIONS (1)
  - Pneumonia [Unknown]
